FAERS Safety Report 9291756 (Version 2)
Quarter: 2013Q2

REPORT INFORMATION
  Report Type: Spontaneous
  Country: US (occurrence: US)
  Receive Date: 20130516
  Receipt Date: 20130618
  Transmission Date: 20140414
  Serious: No
  Sender: FDA-Public Use
  Company Number: US-009507513-1305USA007994

PATIENT
  Sex: 0

DRUGS (1)
  1. NUVARING [Suspect]
     Dosage: ONE RING
     Route: 067

REACTIONS (3)
  - Incorrect drug administration duration [Unknown]
  - Incorrect storage of drug [Unknown]
  - No adverse event [Unknown]
